FAERS Safety Report 21121715 (Version 3)
Quarter: 2022Q3

REPORT INFORMATION
  Report Type: Spontaneous
  Country: PT (occurrence: PT)
  Receive Date: 20220722
  Receipt Date: 20220819
  Transmission Date: 20221026
  Serious: Yes (Other)
  Sender: FDA-Public Use
  Company Number: PT-GILEAD-2022-0590462

PATIENT
  Age: 57 Year
  Sex: Female

DRUGS (3)
  1. TRODELVY [Suspect]
     Active Substance: SACITUZUMAB GOVITECAN-HZIY
     Indication: Triple negative breast cancer
     Dosage: UNK , COMPLETED 5 CYCLES
     Route: 042
     Dates: start: 20220328, end: 20220510
  2. TRODELVY [Suspect]
     Active Substance: SACITUZUMAB GOVITECAN-HZIY
     Dosage: UNK
     Route: 042
     Dates: start: 20220517, end: 20220628
  3. FENTANYL [Concomitant]
     Active Substance: FENTANYL

REACTIONS (4)
  - Disease progression [Unknown]
  - Asthenia [Recovered/Resolved]
  - Constipation [Unknown]
  - Alopecia [Unknown]

NARRATIVE: CASE EVENT DATE: 20020101
